FAERS Safety Report 13487707 (Version 1)
Quarter: 2017Q2

REPORT INFORMATION
  Report Type: Spontaneous
  Country: US (occurrence: US)
  Receive Date: 20170426
  Receipt Date: 20170426
  Transmission Date: 20170830
  Serious: No
  Sender: FDA-Public Use
  Company Number: US-ALKERMES INC.-ALK-2016-002820

PATIENT
  Age: 50 Year
  Sex: Female

DRUGS (1)
  1. VIVITROL [Suspect]
     Active Substance: NALTREXONE
     Indication: ALCOHOLISM
     Dosage: 380 MG, QMO
     Route: 030
     Dates: start: 20160922

REACTIONS (12)
  - Somnolence [Recovered/Resolved]
  - Injection site mass [Unknown]
  - Decreased appetite [Recovered/Resolved]
  - Fatigue [Recovered/Resolved]
  - Disorientation [Recovered/Resolved]
  - Influenza like illness [Recovered/Resolved]
  - Injection site reaction [Unknown]
  - Tooth extraction [Recovered/Resolved]
  - Procedural pain [Unknown]
  - Injection site bruising [Unknown]
  - Feeling abnormal [Not Recovered/Not Resolved]
  - Mood altered [Recovered/Resolved]

NARRATIVE: CASE EVENT DATE: 201609
